FAERS Safety Report 11339294 (Version 2)
Quarter: 2015Q3

REPORT INFORMATION
  Report Type: Spontaneous
  Country: US (occurrence: US)
  Receive Date: 20150804
  Receipt Date: 20150814
  Transmission Date: 20151125
  Serious: Yes (Death)
  Sender: FDA-Public Use
  Company Number: US-ROCHE-1617306

PATIENT
  Age: 82 Year
  Sex: Female
  Weight: 55.84 kg

DRUGS (16)
  1. ASPIR 81 [Concomitant]
     Route: 048
  2. DHEA [Concomitant]
     Active Substance: PRASTERONE
     Route: 065
  3. TYLENOL [Concomitant]
     Active Substance: ACETAMINOPHEN
     Dosage: EVERY 4 HOURS AS NEEDED
     Route: 048
  4. TRAZODONE [Concomitant]
     Active Substance: TRAZODONE HYDROCHLORIDE
     Dosage: EVERYDAY AFTER MEALS
     Route: 048
  5. MAALOX ADVANCED [Concomitant]
     Dosage: AS REQUIRED
     Route: 065
  6. CYMBALTA [Concomitant]
     Active Substance: DULOXETINE HYDROCHLORIDE
     Dosage: DELAYED RELEASE CAPSULE
     Route: 048
  7. VITAMIN D3 [Concomitant]
     Active Substance: CHOLECALCIFEROL
     Dosage: DOSE: 2000 UNIT CAPSULE
     Route: 065
     Dates: start: 20141111
  8. PRILOSEC [Concomitant]
     Active Substance: OMEPRAZOLE MAGNESIUM
     Dosage: DELAYED RELEASE TABLET
     Route: 065
  9. FORTICAL (UNITED STATES) [Concomitant]
     Dosage: 200 UNIT / SPRAY BY INTRANASAL ROUTE EVERYDAY ALTERNATING NOSTRILS DAILY
     Route: 065
  10. NUTROPIN AQ [Suspect]
     Active Substance: SOMATROPIN
     Indication: DWARFISM
     Dosage: FORM STRENGTH: 10 MG / 2 ML (8 VIALS)?NUSPIN
     Route: 058
     Dates: start: 20130901, end: 20150723
  11. HYDROCORTISONE. [Concomitant]
     Active Substance: HYDROCORTISONE
     Route: 065
     Dates: start: 20150512
  12. BONIVA [Concomitant]
     Active Substance: IBANDRONATE SODIUM
     Dosage: TAKEN WITH A FULL GLASS OF WATER AND REMAINED IN AN UPRIGHT POSITION FOR AT LEAST 60 MINUTES
     Route: 048
  13. NYSTATIN. [Concomitant]
     Active Substance: NYSTATIN
     Dosage: 100000 UNIT PER GRAM
     Route: 061
  14. NUTROPIN AQ [Suspect]
     Active Substance: SOMATROPIN
     Indication: HYPOPITUITARISM
  15. LEVOTHYROXINE. [Concomitant]
     Active Substance: LEVOTHYROXINE
     Route: 065
     Dates: start: 20150512
  16. LIDOCAINE. [Concomitant]
     Active Substance: LIDOCAINE
     Dosage: 700 MG / PATCH?APPLY 1 PATCH (MAY WEAR UPTO 12 HOURS)
     Route: 062

REACTIONS (5)
  - Fatigue [Unknown]
  - Memory impairment [Unknown]
  - Depression [Unknown]
  - Cerebrovascular accident [Fatal]
  - Asthenia [Unknown]

NARRATIVE: CASE EVENT DATE: 20150723
